FAERS Safety Report 4617800-5 (Version None)
Quarter: 2005Q1

REPORT INFORMATION
  Report Type: 
  Country: None (occurrence: None)
  Receive Date: 20050324
  Receipt Date: 20050315
  Transmission Date: 20050727
  Serious: Yes (Other)
  Sender: FDA-Public Use
  Company Number: US-JNJFOC-20050304058

PATIENT
  Age: 35 Year
  Sex: Female

DRUGS (9)
  1. ORTHO TRI-CYCLEN LO [Suspect]
     Indication: CONTRACEPTION
     Route: 049
     Dates: start: 20040501
  2. PRENATAL VITAMINS [Concomitant]
     Route: 065
  3. PRENATAL VITAMINS [Concomitant]
     Route: 065
  4. PRENATAL VITAMINS [Concomitant]
     Route: 065
  5. PRENATAL VITAMINS [Concomitant]
     Route: 065
  6. PRENATAL VITAMINS [Concomitant]
     Route: 065
  7. PRENATAL VITAMINS [Concomitant]
     Route: 065
  8. PRENATAL VITAMINS [Concomitant]
     Route: 065
  9. PRENATAL VITAMINS [Concomitant]
     Indication: VITAMIN SUPPLEMENTATION
     Route: 065

REACTIONS (4)
  - ABORTION SPONTANEOUS [None]
  - DRUG EXPOSURE DURING PREGNANCY [None]
  - METRORRHAGIA [None]
  - PREGNANCY ON ORAL CONTRACEPTIVE [None]
